FAERS Safety Report 26072225 (Version 2)
Quarter: 2025Q4

REPORT INFORMATION
  Report Type: Spontaneous
  Country: None (occurrence: JP)
  Receive Date: 20251120
  Receipt Date: 20251120
  Transmission Date: 20260117
  Serious: Yes (Death, Other)
  Sender: AURINIA PHARMACEUTICALS
  Company Number: JP-OTSUKA PHARMACEUTICAL NETHERLANDS B.V.-AUR-010017

PATIENT
  Age: 69 Year

DRUGS (2)
  1. LUPKYNIS [Suspect]
     Active Substance: VOCLOSPORIN
     Indication: Product used for unknown indication
     Dosage: UNK
  2. SAPHNELO [Concomitant]
     Active Substance: ANIFROLUMAB-FNIA
     Indication: Product used for unknown indication

REACTIONS (3)
  - Cardiac failure [Fatal]
  - Stress cardiomyopathy [Unknown]
  - Product prescribing issue [Unknown]
